FAERS Safety Report 13605532 (Version 1)
Quarter: 2017Q2

REPORT INFORMATION
  Report Type: Spontaneous
  Country: GB (occurrence: GB)
  Receive Date: 20170602
  Receipt Date: 20170602
  Transmission Date: 20170830
  Serious: Yes (Hospitalization, Other)
  Sender: FDA-Public Use
  Company Number: GB-AMGEN-GBRSP2017082421

PATIENT
  Sex: Female

DRUGS (1)
  1. ARANESP [Suspect]
     Active Substance: DARBEPOETIN ALFA
     Indication: PRODUCT USED FOR UNKNOWN INDICATION
     Dosage: 60 MUG, UNK
     Route: 065

REACTIONS (6)
  - Macule [Unknown]
  - Back pain [Unknown]
  - Escherichia infection [Unknown]
  - Pain in extremity [Unknown]
  - Arthropathy [Unknown]
  - Rash [Unknown]
